APPROVED DRUG PRODUCT: HYDROCORTISONE VALERATE
Active Ingredient: HYDROCORTISONE VALERATE
Strength: 0.2%
Dosage Form/Route: CREAM;TOPICAL
Application: A210307 | Product #001 | TE Code: AB
Applicant: LUPIN LTD
Approved: Aug 15, 2019 | RLD: No | RS: No | Type: RX